FAERS Safety Report 25478408 (Version 1)
Quarter: 2025Q2

REPORT INFORMATION
  Report Type: Spontaneous
  Country: US (occurrence: None)
  Receive Date: 20250625
  Receipt Date: 20250625
  Transmission Date: 20250716
  Serious: Yes (unspecified)
  Sender: FDA-CTU
  Company Number: None

PATIENT
  Age: 68 Year
  Sex: Female
  Weight: 44.45 kg

DRUGS (16)
  1. TERIPARATIDE [Suspect]
     Active Substance: TERIPARATIDE
     Indication: Osteoporosis
     Dosage: OTHER QUANTITY : INJECT .08ML (20 MCG);?FREQUENCY : DAILY;?
     Route: 058
     Dates: start: 20250506, end: 20250510
  2. ALPHA LIPOIC ACID [Concomitant]
     Active Substance: .ALPHA.-LIPOIC ACID
  3. COLACE CLEAR [Concomitant]
     Active Substance: DOCUSATE SODIUM
  4. MAGNESIUM GLYCINATE [Concomitant]
     Active Substance: MAGNESIUM GLYCINATE
  5. MELATONIN [Concomitant]
     Active Substance: MELATONIN
  6. MIRALAX [Concomitant]
     Active Substance: POLYETHYLENE GLYCOL 3350
  7. METAMUCIL [Concomitant]
     Active Substance: PLANTAGO SEED
  8. VITAMINS [Concomitant]
     Active Substance: VITAMINS
  9. OMEGA 3 [Concomitant]
     Active Substance: CAPSAICIN
  10. PEPCID AC [Concomitant]
     Active Substance: FAMOTIDINE
  11. PROBIOTICS NOS [Concomitant]
     Active Substance: PROBIOTICS NOS
  12. DIETARY SUPPLEMENT\RESVERATROL [Concomitant]
     Active Substance: DIETARY SUPPLEMENT\RESVERATROL
  13. Turmeric/Curcumin [Concomitant]
  14. LORATADINE ALLERGY RELIEF [Concomitant]
     Active Substance: LORATADINE
  15. SERTRALINE [Concomitant]
     Active Substance: SERTRALINE HYDROCHLORIDE
  16. GABAPENTIN [Concomitant]
     Active Substance: GABAPENTIN

REACTIONS (3)
  - Eye pain [None]
  - Blister [None]
  - Therapy cessation [None]

NARRATIVE: CASE EVENT DATE: 20250507
